FAERS Safety Report 21804170 (Version 1)
Quarter: 2023Q1

REPORT INFORMATION
  Report Type: Report from Study
  Country: US (occurrence: US)
  Receive Date: 20230102
  Receipt Date: 20230102
  Transmission Date: 20230417
  Serious: No
  Sender: FDA-Public Use
  Company Number: US-ABBVIE-4222851

PATIENT
  Age: 37 Year
  Sex: Male

DRUGS (4)
  1. HUMIRA [Suspect]
     Active Substance: ADALIMUMAB
     Indication: Uveitis
     Dosage: CITRATE FREE
     Route: 058
     Dates: start: 20220922
  2. Pfizer/BioNTech  COVID-19 vaccine [Concomitant]
     Indication: COVID-19 immunisation
     Dates: start: 20210510, end: 20210510
  3. Pfizer/BioNTech  COVID-19 vaccine [Concomitant]
     Indication: COVID-19 immunisation
     Dates: start: 20210601, end: 202106
  4. Pfizer/BioNTech  COVID-19 vaccine [Concomitant]
     Indication: COVID-19 immunisation
     Dates: start: 20220402, end: 20220402

REACTIONS (4)
  - Gastrointestinal infection [Not Recovered/Not Resolved]
  - Nausea [Not Recovered/Not Resolved]
  - Decreased appetite [Not Recovered/Not Resolved]
  - Flatulence [Not Recovered/Not Resolved]

NARRATIVE: CASE EVENT DATE: 20221101
